FAERS Safety Report 18516006 (Version 1)
Quarter: 2020Q4

REPORT INFORMATION
  Report Type: Report from Study
  Country: US (occurrence: US)
  Receive Date: 20201118
  Receipt Date: 20201118
  Transmission Date: 20210114
  Serious: Yes (Other)
  Sender: FDA-Public Use
  Company Number: US-HBP-2020US021283

PATIENT
  Sex: Male

DRUGS (1)
  1. VALCHLOR [Suspect]
     Active Substance: MECHLORETHAMINE
     Indication: CUTANEOUS T-CELL LYMPHOMA
     Dosage: UNK, QD
     Route: 061

REACTIONS (4)
  - Blister [Recovering/Resolving]
  - Condition aggravated [Recovering/Resolving]
  - Neoplasm malignant [Recovering/Resolving]
  - Skin discolouration [Not Recovered/Not Resolved]
